FAERS Safety Report 16651840 (Version 1)
Quarter: 2019Q3

REPORT INFORMATION
  Report Type: Spontaneous
  Country: US (occurrence: US)
  Receive Date: 20190730
  Receipt Date: 20190730
  Transmission Date: 20191004
  Serious: No
  Sender: FDA-Public Use
  Company Number: None

PATIENT
  Age: 67 Year
  Sex: Female

DRUGS (10)
  1. SERTRALINE 50MG [Concomitant]
     Active Substance: SERTRALINE HYDROCHLORIDE
  2. LEVOTHYROXINE 0.088MG [Concomitant]
  3. ALEVE [Concomitant]
     Active Substance: NAPROXEN SODIUM
  4. ASPIRIN EC 81MG [Concomitant]
  5. MULTIPLE VITAMIN [Concomitant]
     Active Substance: VITAMINS
  6. OMEGA-3 1000MG [Concomitant]
  7. REPATHA [Suspect]
     Active Substance: EVOLOCUMAB
     Indication: HYPERLIPIDAEMIA
     Dosage: ?          OTHER FREQUENCY:EVERY 2 WEEKS;?
     Route: 058
     Dates: start: 20190514, end: 20190716
  8. FENOFIBRATE 54MG [Concomitant]
  9. FLONASE [Concomitant]
     Active Substance: FLUTICASONE PROPIONATE
  10. OMEPRAZOLE 40MG [Concomitant]
     Active Substance: OMEPRAZOLE

REACTIONS (6)
  - Thirst [None]
  - Nausea [None]
  - Headache [None]
  - Muscle spasms [None]
  - Malaise [None]
  - Diarrhoea [None]

NARRATIVE: CASE EVENT DATE: 20190716
